FAERS Safety Report 8249954-6 (Version None)
Quarter: 2012Q2

REPORT INFORMATION
  Report Type: 
  Country: None (occurrence: None)
  Receive Date: 20120402
  Receipt Date: 20120322
  Transmission Date: 20120825
  Serious: Yes (Hospitalization)
  Sender: FDA-Public Use
  Company Number: GB-JNJFOC-20110309766

PATIENT
  Sex: Male
  Weight: 81 kg

DRUGS (2)
  1. INFLIXIMAB, RECOMBINANT [Suspect]
     Indication: RHEUMATOID ARTHRITIS
     Route: 042
     Dates: start: 20070202
  2. METHOTREXATE [Concomitant]
     Dates: start: 20070202

REACTIONS (6)
  - OEDEMA PERIPHERAL [None]
  - CHRONIC OBSTRUCTIVE PULMONARY DISEASE [None]
  - CELLULITIS [None]
  - INFECTIVE EXACERBATION OF BRONCHIECTASIS [None]
  - PNEUMONIA [None]
  - SKIN ULCER [None]
